FAERS Safety Report 18227823 (Version 1)
Quarter: 2020Q3

REPORT INFORMATION
  Report Type: Spontaneous
  Country: GB (occurrence: GB)
  Receive Date: 20200903
  Receipt Date: 20200903
  Transmission Date: 20201103
  Serious: Yes (Other)
  Sender: FDA-Public Use
  Company Number: GB-ACCORD-186359

PATIENT
  Age: 37 Year
  Sex: Female

DRUGS (1)
  1. AMITRIPTYLINE ACCORD [Suspect]
     Active Substance: AMITRIPTYLINE
     Indication: CROHN^S DISEASE
     Dosage: STRENGTH: 25 MG; AT NIGHT
     Route: 048
     Dates: start: 202006, end: 202007

REACTIONS (15)
  - Anxiety [Recovered/Resolved]
  - Abdominal pain upper [Recovered/Resolved]
  - Loss of consciousness [Unknown]
  - Abdominal discomfort [Recovered/Resolved]
  - Feeling abnormal [Recovered/Resolved]
  - Nausea [Recovered/Resolved]
  - Decreased appetite [Recovered/Resolved]
  - Breast swelling [Unknown]
  - Off label use [Unknown]
  - Product physical issue [Unknown]
  - Dry mouth [Recovered/Resolved]
  - Product taste abnormal [Unknown]
  - Wrong technique in product usage process [Unknown]
  - Tremor [Recovered/Resolved]
  - Dizziness [Recovered/Resolved]
